FAERS Safety Report 5325835-2 (Version None)
Quarter: 2007Q2

REPORT INFORMATION
  Report Type: 
  Country: None (occurrence: None)
  Receive Date: 20070510
  Receipt Date: 20070424
  Transmission Date: 20071010
  Serious: Yes (Other)
  Sender: FDA-Public Use
  Company Number: 8023558

PATIENT

DRUGS (1)
  1. LEVETIRACETAM [Suspect]

REACTIONS (1)
  - INTESTINAL PERFORATION [None]
